FAERS Safety Report 17440319 (Version 1)
Quarter: 2020Q1

REPORT INFORMATION
  Report Type: Spontaneous
  Country: US (occurrence: US)
  Receive Date: 20200205
  Receipt Date: 20200205
  Transmission Date: 20200409
  Serious: No
  Sender: FDA-Public Use
  Company Number: None

PATIENT
  Age: 83 Year
  Sex: Female

DRUGS (1)
  1. REVLIMID [Suspect]
     Active Substance: LENALIDOMIDE
     Indication: PLASMA CELL MYELOMA
     Route: 048
     Dates: start: 20200113, end: 20200205

REACTIONS (8)
  - Fatigue [None]
  - Tremor [None]
  - Sedation [None]
  - Therapy cessation [None]
  - Night sweats [None]
  - Mobility decreased [None]
  - Insomnia [None]
  - Drug intolerance [None]

NARRATIVE: CASE EVENT DATE: 20200120
